FAERS Safety Report 6763634-5 (Version None)
Quarter: 2010Q2

REPORT INFORMATION
  Report Type: 
  Country: None (occurrence: None)
  Receive Date: 20100610
  Receipt Date: 20100604
  Transmission Date: 20101027
  Serious: No
  Sender: FDA-Public Use
  Company Number: US-ROXANE LABORATORIES, INC.-2010-RO-00700RO

PATIENT
  Age: 69 Year
  Sex: Male

DRUGS (2)
  1. METHADONE [Suspect]
     Indication: PEMPHIGUS
     Route: 048
  2. PERCOCET [Concomitant]

REACTIONS (3)
  - FEELING ABNORMAL [None]
  - FEELING JITTERY [None]
  - TACHYCARDIA [None]
